FAERS Safety Report 25874658 (Version 1)
Quarter: 2025Q4

REPORT INFORMATION
  Report Type: Spontaneous
  Country: US (occurrence: US)
  Receive Date: 20251002
  Receipt Date: 20251002
  Transmission Date: 20260117
  Serious: No
  Sender: CALLIDITAS THERAPEUTICS AB
  Company Number: US-Calliditas-2025CAL02792

PATIENT
  Age: 37 Year
  Sex: Male

DRUGS (15)
  1. TARPEYO [Suspect]
     Active Substance: BUDESONIDE
     Indication: IgA nephropathy
     Route: 048
     Dates: start: 20250425
  2. ALLOPURINOL [Concomitant]
     Active Substance: ALLOPURINOL
  3. CARVEDILOL [Concomitant]
     Active Substance: CARVEDILOL
  4. CETIRIZINE [Concomitant]
     Active Substance: CETIRIZINE HYDROCHLORIDE
  5. PANTOPRAZOLE [Concomitant]
     Active Substance: PANTOPRAZOLE
  6. AMLODIPINE [Concomitant]
     Active Substance: AMLODIPINE BESYLATE
  7. FAMOTIDINE [Concomitant]
     Active Substance: FAMOTIDINE
  8. HYOSCYAMINE [Concomitant]
     Active Substance: HYOSCYAMINE
     Dosage: EVERY 4 HOURS IF NEEDED
  9. FARXIGA [Concomitant]
     Active Substance: DAPAGLIFLOZIN PROPANEDIOL
     Dosage: EVERY 4 HOURS IF NEEDED
  10. VITAMIN D NOS [Concomitant]
     Active Substance: CHOLECALCIFEROL\ERGOCALCIFEROL
     Dosage: EVERY 4 HOURS IF NEEDED
  11. LOSARTAN [Concomitant]
     Active Substance: LOSARTAN
     Dosage: EVERY 4 HOURS IF NEEDED
  12. SUDAFED [Concomitant]
     Active Substance: PSEUDOEPHEDRINE HYDROCHLORIDE
     Dosage: EVERY 4 HOURS IF NEEDED
  13. TYLENOL [Concomitant]
     Active Substance: ACETAMINOPHEN
     Dosage: EVERY 4 HOURS IF NEEDED
  14. TUMS [Concomitant]
     Active Substance: CALCIUM CARBONATE
     Dosage: EVERY 4 HOURS IF NEEDED
  15. ACYCLOVIR [Concomitant]
     Active Substance: ACYCLOVIR
     Dosage: EVERY 4 HOURS IF NEEDED

REACTIONS (1)
  - Extra dose administered [Unknown]

NARRATIVE: CASE EVENT DATE: 20250902
